FAERS Safety Report 5354830-2 (Version None)
Quarter: 2007Q2

REPORT INFORMATION
  Report Type: 
  Country: None (occurrence: None)
  Receive Date: 20070612
  Receipt Date: 20070531
  Transmission Date: 20071010
  Serious: Yes (Other)
  Sender: FDA-Public Use
  Company Number: US-PFIZER INC-2007018459

PATIENT
  Age: 43 Year
  Sex: Female
  Weight: 75.8 kg

DRUGS (1)
  1. CHANTIX [Suspect]
     Indication: EX-SMOKER
     Route: 048
     Dates: start: 20070301, end: 20070306

REACTIONS (2)
  - HEAD DISCOMFORT [None]
  - SWELLING FACE [None]
